FAERS Safety Report 5763787-1 (Version None)
Quarter: 2008Q2

REPORT INFORMATION
  Report Type: 
  Country: None (occurrence: None)
  Receive Date: 20080602
  Receipt Date: 20070413
  Transmission Date: 20081010
  Serious: Yes (Life-Threatening, Other)
  Sender: FDA-Public Use
  Company Number: 155322USA

PATIENT
  Sex: Female

DRUGS (1)
  1. CEFALEXIN CAPSULES (CEFALEXIN) [Suspect]
     Dosage: ORAL
     Route: 048
     Dates: start: 20060303, end: 20060404

REACTIONS (2)
  - STEVENS-JOHNSON SYNDROME [None]
  - TOXIC EPIDERMAL NECROLYSIS [None]
